FAERS Safety Report 5518525-4 (Version None)
Quarter: 2007Q4

REPORT INFORMATION
  Report Type: 
  Country: None (occurrence: None)
  Receive Date: 20071115
  Receipt Date: 20071107
  Transmission Date: 20080405
  Serious: Yes (Other)
  Sender: FDA-Public Use
  Company Number: US-PFIZER INC-2007084879

PATIENT
  Sex: Female
  Weight: 90.7 kg

DRUGS (7)
  1. EXUBERA [Suspect]
     Indication: TYPE 2 DIABETES MELLITUS
     Route: 055
     Dates: start: 20071002, end: 20071006
  2. ALL OTHER THERAPEUTIC PRODUCTS [Concomitant]
  3. DIOVAN [Concomitant]
     Indication: HYPERTENSION
  4. ASTELIN [Concomitant]
     Indication: HYPERSENSITIVITY
  5. FLOVENT [Concomitant]
     Indication: HYPERSENSITIVITY
  6. VYTORIN [Concomitant]
  7. LASIX [Concomitant]
     Indication: OEDEMA PERIPHERAL

REACTIONS (3)
  - CHEST DISCOMFORT [None]
  - CHEST PAIN [None]
  - LUNG DISORDER [None]
